FAERS Safety Report 6490715-6 (Version None)
Quarter: 2009Q4

REPORT INFORMATION
  Report Type: 
  Country: None (occurrence: None)
  Receive Date: 20091211
  Receipt Date: 20091127
  Transmission Date: 20100525
  Serious: Yes (Hospitalization)
  Sender: FDA-Public Use
  Company Number: B0606716A

PATIENT
  Sex: Female
  Weight: 47 kg

DRUGS (3)
  1. BLINDED TRIAL MEDICATION [Suspect]
     Indication: GASTRIC CANCER
     Route: 048
     Dates: start: 20091102
  2. CAPECITABINE [Suspect]
     Indication: GASTRIC CANCER
     Dosage: 1150MG TWICE PER DAY
     Route: 048
     Dates: start: 20091102
  3. OXALIPLATIN [Suspect]
     Indication: GASTRIC CANCER
     Dosage: 175MG CYCLIC
     Route: 042
     Dates: start: 20091102

REACTIONS (6)
  - ANAEMIA [None]
  - ASTHENIA [None]
  - FAECES DISCOLOURED [None]
  - FATIGUE [None]
  - GASTRIC HAEMORRHAGE [None]
  - VOMITING [None]
